FAERS Safety Report 4829358-6 (Version None)
Quarter: 2005Q4

REPORT INFORMATION
  Report Type: 
  Country: None (occurrence: None)
  Receive Date: 20051028
  Receipt Date: 20050808
  Transmission Date: 20060501
  Serious: No
  Sender: FDA-Public Use
  Company Number: COT_0175_2005

PATIENT
  Age: 59 Year
  Sex: Female
  Weight: 73.4827 kg

DRUGS (14)
  1. VENTAVIS [Suspect]
     Indication: PULMONARY HYPERTENSION
     Dosage: 5 MCG 6XD IH
     Route: 055
     Dates: start: 20050801
  2. LANTUS [Concomitant]
  3. LORAZEPAM [Concomitant]
  4. PROMETHAZINE [Concomitant]
  5. POTASSIUM CHLORIDE [Concomitant]
  6. HUMALOG [Concomitant]
  7. LACTULOSE [Concomitant]
  8. DURAGESIC-100 [Concomitant]
  9. FUROSEMIDE [Concomitant]
  10. SYNTHROID [Concomitant]
  11. FOLIC ACID [Concomitant]
  12. PROZAC [Concomitant]
  13. PRILOSEC [Concomitant]
  14. OXYGEN [Concomitant]

REACTIONS (4)
  - CHEST DISCOMFORT [None]
  - FLUSHING [None]
  - HEADACHE [None]
  - PAIN IN JAW [None]
